FAERS Safety Report 5943211-6 (Version None)
Quarter: 2008Q4

REPORT INFORMATION
  Report Type: 
  Country: None (occurrence: None)
  Receive Date: 20081106
  Receipt Date: 20081029
  Transmission Date: 20090506
  Serious: Yes (Hospitalization)
  Sender: FDA-Public Use
  Company Number: B0544045A

PATIENT
  Age: 51 Year
  Sex: Male

DRUGS (5)
  1. KIVEXA [Suspect]
     Indication: HIV INFECTION
     Dosage: 1TAB PER DAY
     Route: 048
     Dates: start: 20050921
  2. PROGRAF [Suspect]
     Indication: LIVER TRANSPLANT
     Dosage: 500MGM2 EVERY TWO WEEKS
     Route: 048
     Dates: start: 20051021
  3. KALETRA [Suspect]
     Indication: HIV INFECTION
     Route: 048
     Dates: start: 20050921
  4. CELL CEPT [Concomitant]
  5. REBETOL [Concomitant]

REACTIONS (5)
  - CAROTID ARTERY STENOSIS [None]
  - CHEST PAIN [None]
  - HYPERHIDROSIS [None]
  - LOSS OF CONSCIOUSNESS [None]
  - PALLOR [None]
